FAERS Safety Report 22196463 (Version 1)
Quarter: 2023Q2

REPORT INFORMATION
  Report Type: Spontaneous
  Country: US (occurrence: None)
  Receive Date: 20230410
  Receipt Date: 20230410
  Transmission Date: 20230722
  Serious: Yes (Hospitalization)
  Sender: FDA-Public Use
  Company Number: None

PATIENT
  Sex: Female

DRUGS (1)
  1. CAPECITABINE [Suspect]
     Active Substance: CAPECITABINE
     Indication: Breast cancer female
     Dosage: 1500MG  BID FOR 14DAYS /OFF 7 ORAL?
     Route: 048
     Dates: start: 20230326

REACTIONS (3)
  - Electrolyte imbalance [None]
  - Diarrhoea [None]
  - Therapy change [None]
